FAERS Safety Report 22944961 (Version 8)
Quarter: 2025Q1

REPORT INFORMATION
  Report Type: Spontaneous
  Country: US (occurrence: US)
  Receive Date: 20230914
  Receipt Date: 20250205
  Transmission Date: 20250409
  Serious: No
  Sender: PFIZER
  Company Number: US-PFIZER INC-PV202300153296

PATIENT
  Age: 73 Year
  Sex: Female
  Weight: 56.689 kg

DRUGS (2)
  1. IBRANCE [Suspect]
     Active Substance: PALBOCICLIB
     Indication: Endometrial cancer recurrent
     Route: 048
     Dates: start: 20230103
  2. EXEMESTANE [Concomitant]
     Active Substance: EXEMESTANE
     Dates: start: 20230301

REACTIONS (6)
  - Hypoacusis [Unknown]
  - Weight decreased [Recovered/Resolved]
  - Fatigue [Unknown]
  - Nausea [Unknown]
  - Decreased appetite [Recovering/Resolving]
  - Off label use [Unknown]

NARRATIVE: CASE EVENT DATE: 20230101
